FAERS Safety Report 18309877 (Version 1)
Quarter: 2020Q3

REPORT INFORMATION
  Report Type: Other
  Country: ES (occurrence: ES)
  Receive Date: 20200925
  Receipt Date: 20200925
  Transmission Date: 20201103
  Serious: Yes (Other)
  Sender: FDA-Public Use
  Company Number: ES-ROCHE-2679550

PATIENT

DRUGS (4)
  1. ATEZOLIZUMAB. [Suspect]
     Active Substance: ATEZOLIZUMAB
     Indication: IMMUNOSUPPRESSANT DRUG THERAPY
     Route: 065
  2. NIVOLUMAB [Concomitant]
     Active Substance: NIVOLUMAB
     Indication: IMMUNOSUPPRESSANT DRUG THERAPY
     Route: 065
  3. PEMBROLIZUMAB. [Concomitant]
     Active Substance: PEMBROLIZUMAB
  4. IPILIMUMAB [Concomitant]
     Active Substance: IPILIMUMAB

REACTIONS (16)
  - Arthritis [Unknown]
  - Psoriasis [Unknown]
  - Alopecia [Unknown]
  - Nephritis [Unknown]
  - Colitis [Unknown]
  - Hyperthyroidism [Unknown]
  - Myositis [Unknown]
  - Erythema nodosum [Unknown]
  - Hepatocellular injury [Unknown]
  - Diarrhoea [Unknown]
  - Vitiligo [Unknown]
  - Mucosal inflammation [Unknown]
  - Rash [Unknown]
  - Cholestasis [Unknown]
  - Hypothyroidism [Unknown]
  - Arthralgia [Unknown]
